FAERS Safety Report 8954589 (Version 1)
Quarter: 2012Q4

REPORT INFORMATION
  Report Type: 
  Country: US (occurrence: US)
  Receive Date: 20121209
  Receipt Date: 20121209
  Transmission Date: 20130627
  Serious: Yes (Other)
  Sender: FDA-Public Use
  Company Number: US-SANOFI-AVENTIS-2012SA087882

PATIENT
  Sex: Male

DRUGS (1)
  1. LOVENOX [Suspect]
     Indication: PROPHYLAXIS
     Route: 065
     Dates: start: 2010

REACTIONS (2)
  - Large intestine polyp [Unknown]
  - Tremor [Unknown]
